FAERS Safety Report 7268159-9 (Version None)
Quarter: 2011Q1

REPORT INFORMATION
  Report Type: 
  Country: None (occurrence: None)
  Receive Date: 20110201
  Receipt Date: 20110120
  Transmission Date: 20110831
  Serious: No
  Sender: FDA-Public Use
  Company Number: IN-ELI_LILLY_AND_COMPANY-IN201012004273

PATIENT
  Age: 75 Year
  Sex: Female

DRUGS (2)
  1. PAIN RELIEF [Concomitant]
     Dosage: UNK, UNKNOWN
     Route: 065
     Dates: end: 20101201
  2. FORTEO [Suspect]
     Indication: OSTEOPOROSIS
     Dosage: 20 UG, DAILY (1/D)
     Route: 058
     Dates: start: 20101127

REACTIONS (1)
  - PAIN [None]
